FAERS Safety Report 12546613 (Version 1)
Quarter: 2016Q3

REPORT INFORMATION
  Report Type: Report from Study
  Country: JP (occurrence: JP)
  Receive Date: 20160711
  Receipt Date: 20160711
  Transmission Date: 20161109
  Serious: Yes (Hospitalization)
  Sender: FDA-Public Use
  Company Number: JP-SA-2016SA124279

PATIENT
  Age: 74 Year
  Sex: Male
  Weight: 62.7 kg

DRUGS (6)
  1. LANSOPRAZOLE. [Concomitant]
     Active Substance: LANSOPRAZOLE
  2. BAYASPIRIN [Concomitant]
     Active Substance: ASPIRIN
     Dates: start: 20160109
  3. FLUMETHOLON [Concomitant]
     Active Substance: FLUOROMETHOLONE
  4. HYALURONIC ACID [Concomitant]
     Active Substance: HYALURONIC ACID
  5. PLAVIX [Suspect]
     Active Substance: CLOPIDOGREL BISULFATE
     Indication: ARTERIAL OCCLUSIVE DISEASE
     Route: 065
     Dates: start: 20150131, end: 20160108
  6. BAYASPIRIN [Concomitant]
     Active Substance: ASPIRIN
     Dates: end: 20150130

REACTIONS (3)
  - Cholangitis acute [Recovered/Resolved]
  - Eyelid bleeding [Recovered/Resolved]
  - Cholelithiasis [Not Recovered/Not Resolved]

NARRATIVE: CASE EVENT DATE: 20150710
